FAERS Safety Report 8814572 (Version 2)
Quarter: 2013Q1

REPORT INFORMATION
  Report Type: Spontaneous
  Country: US (occurrence: None)
  Receive Date: 20120925
  Receipt Date: 20121026
  Transmission Date: 20140127
  Serious: Yes (Hospitalization, Other)
  Sender: FDA-Public Use
  Company Number: AUR-APL-2012-03785

PATIENT
  Age: 84 Year
  Sex: Male

DRUGS (5)
  1. CEFTRIAXONE [Suspect]
     Indication: PRODUCT USED FOR UNKNOWN INDICATION
  2. CEFEPIME [Suspect]
     Indication: PRODUCT USED FOR UNKNOWN INDICATION
  3. ESOMEPRAZOLE [Concomitant]
  4. MEROPENEM [Concomitant]
  5. PIPERACILLIN-TAZOBACTAM (PIPERACILLIN SODIUM [Concomitant]

REACTIONS (6)
  - Leukocytosis [None]
  - Blood creatinine increased [None]
  - Eosinophil percentage increased [None]
  - Rash morbilliform [None]
  - Drug hypersensitivity [None]
  - Eczema [None]
